FAERS Safety Report 6329202-4 (Version None)
Quarter: 2009Q3

REPORT INFORMATION
  Report Type: 
  Country: None (occurrence: None)
  Receive Date: 20090826
  Receipt Date: 20090814
  Transmission Date: 20100115
  Serious: Yes (Hospitalization)
  Sender: FDA-Public Use
  Company Number: DE-PFIZER INC-2009247074

PATIENT
  Age: 20 Year

DRUGS (7)
  1. SOBELIN [Suspect]
     Indication: SINUSITIS
     Dosage: 600 MG, 3X/DAY
     Route: 042
     Dates: start: 20090615, end: 20090617
  2. PREDNISOLONE [Concomitant]
     Indication: SINUSITIS
     Dosage: UNK
     Route: 042
     Dates: start: 20090615, end: 20090617
  3. VOLTAREN [Concomitant]
     Indication: SINUSITIS
     Dosage: UNK
     Route: 048
     Dates: start: 20090615, end: 20090617
  4. PARACETAMOL [Concomitant]
     Indication: SINUSITIS
     Dosage: UNK
     Route: 048
     Dates: start: 20090615, end: 20090617
  5. MUCOSOLVAN [Concomitant]
     Indication: UPPER RESPIRATORY TRACT INFECTION
     Dosage: UNK
     Dates: start: 20090601, end: 20090601
  6. SINUPRET [Concomitant]
     Indication: UPPER RESPIRATORY TRACT INFECTION
     Dosage: UNK
     Dates: start: 20090601, end: 20090601
  7. VALETTE [Concomitant]
     Indication: CONTRACEPTION
     Dosage: 1 DF, 1X/DAY
     Route: 048

REACTIONS (10)
  - ACUTE ABDOMEN [None]
  - CANDIDIASIS [None]
  - CHOLESTASIS [None]
  - CYSTITIS [None]
  - EYELID OEDEMA [None]
  - FATIGUE [None]
  - GENITAL CANDIDIASIS [None]
  - HEPATITIS TOXIC [None]
  - JOINT SWELLING [None]
  - RASH [None]
